FAERS Safety Report 9490675 (Version 1)
Quarter: 2013Q3

REPORT INFORMATION
  Report Type: Spontaneous
  Country: US (occurrence: None)
  Receive Date: 20130828
  Receipt Date: 20130828
  Transmission Date: 20140515
  Serious: No
  Sender: FDA-Public Use
  Company Number: None

PATIENT
  Sex: Male
  Weight: 89.1 kg

DRUGS (1)
  1. OXYCODONE/APAP [Suspect]
     Indication: PAIN
     Dosage: 2 TABLET Q4H PRN PO
     Route: 048
     Dates: start: 201306

REACTIONS (1)
  - Skin exfoliation [None]
